FAERS Safety Report 6992364-X (Version None)
Quarter: 2010Q3

REPORT INFORMATION
  Report Type: 
  Country: None (occurrence: None)
  Receive Date: 20100915
  Receipt Date: 20100901
  Transmission Date: 20110219
  Serious: Yes (Death, Hospitalization)
  Sender: FDA-Public Use
  Company Number: FR-GDP-10408933

PATIENT
  Sex: Female
  Weight: 53 kg

DRUGS (4)
  1. METVIXIA [Suspect]
     Indication: ACTINIC KERATOSIS
     Dosage: (1 DF TOPICAL)
     Route: 061
     Dates: start: 20100505, end: 20100505
  2. METVIXIA [Suspect]
     Indication: BASAL CELL CARCINOMA
     Dosage: (1 DF TOPICAL)
     Route: 061
     Dates: start: 20100505, end: 20100505
  3. CORTANCYL [Concomitant]
  4. ENDOXAN  /00021101/ [Concomitant]

REACTIONS (3)
  - ANXIETY [None]
  - LEUKAEMIA [None]
  - MALIGNANT NEOPLASM PROGRESSION [None]
